FAERS Safety Report 4332877-2 (Version None)
Quarter: 2004Q1

REPORT INFORMATION
  Report Type: 
  Country: None (occurrence: None)
  Receive Date: 20040330
  Receipt Date: 20040316
  Transmission Date: 20041129
  Serious: Yes (Other)
  Sender: FDA-Public Use
  Company Number: S03-USA-04385-01

PATIENT
  Age: 43 Year
  Sex: Male

DRUGS (4)
  1. LEXAPRO [Suspect]
     Indication: DEPRESSION
     Dosage: 10 MG QD PO
     Route: 048
     Dates: start: 20021101
  2. RITALIN [Concomitant]
  3. RITALIN - SLOW RELEASE (METHYLPHENIDATE HYDROCHLORIDE) [Concomitant]
  4. WELLBUTRIN SR [Concomitant]

REACTIONS (5)
  - BLOOD PROLACTIN INCREASED [None]
  - BLOOD TESTOSTERONE DECREASED [None]
  - GYNAECOMASTIA [None]
  - PITUITARY TUMOUR BENIGN [None]
  - SINUS POLYP [None]
